FAERS Safety Report 23222776 (Version 1)
Quarter: 2023Q4

REPORT INFORMATION
  Report Type: Spontaneous
  Country: HU (occurrence: HU)
  Receive Date: 20231123
  Receipt Date: 20231123
  Transmission Date: 20240110
  Serious: Yes (Hospitalization, Other)
  Sender: FDA-Public Use
  Company Number: HU-009507513-2311HUN004109

PATIENT
  Sex: Male

DRUGS (1)
  1. KEYTRUDA [Suspect]
     Active Substance: PEMBROLIZUMAB
     Indication: Malignant melanoma stage III
     Dosage: 200 MILLIGRAM
     Route: 042
     Dates: start: 202211, end: 20221215

REACTIONS (5)
  - Immune-mediated myositis [Unknown]
  - Immune-mediated myocarditis [Unknown]
  - Thrombosis [Unknown]
  - Pulmonary embolism [Unknown]
  - Superficial spreading melanoma stage unspecified [Unknown]

NARRATIVE: CASE EVENT DATE: 20221201
